FAERS Safety Report 9494598 (Version 5)
Quarter: 2014Q1

REPORT INFORMATION
  Report Type: Spontaneous
  Country: FR (occurrence: FR)
  Receive Date: 20130903
  Receipt Date: 20140228
  Transmission Date: 20141002
  Serious: Yes (Death, Hospitalization)
  Sender: FDA-Public Use
  Company Number: FR-CELGENEUS-056-21880-13080288

PATIENT
  Age: 69 Year
  Sex: Male
  Weight: 66 kg

DRUGS (24)
  1. REVLIMID [Suspect]
     Indication: PLASMA CELL MYELOMA
     Dosage: 25 MILLIGRAM
     Route: 048
     Dates: start: 20130117, end: 20130718
  2. REVLIMID [Suspect]
     Dosage: 25 MILLIGRAM
     Route: 048
     Dates: start: 20130718, end: 20130724
  3. REVLIMID [Suspect]
     Route: 048
     Dates: end: 20130808
  4. DEXAMETHASONE [Suspect]
     Indication: PLASMA CELL MYELOMA
     Dosage: 40 MILLIGRAM
     Route: 048
     Dates: start: 20130117, end: 20130718
  5. DEXAMETHASONE [Suspect]
     Dosage: 40 MILLIGRAM
     Route: 048
     Dates: start: 20130718, end: 20130723
  6. DEXAMETHASONE [Suspect]
     Dosage: 40 MILLIGRAM
     Route: 048
     Dates: end: 20130808
  7. MLN9708/PLACEBO [Suspect]
     Indication: PLASMA CELL MYELOMA
     Dosage: 4 MILLIGRAM
     Route: 048
     Dates: start: 20130117, end: 20130718
  8. MLN9708/PLACEBO [Suspect]
     Dosage: 4 MILLIGRAM
     Route: 048
     Dates: start: 20130718, end: 20130723
  9. MLN9708/PLACEBO [Suspect]
     Dosage: 4 MILLIGRAM
     Route: 048
     Dates: end: 20130808
  10. NEULASTA [Concomitant]
     Indication: PLASMA CELL MYELOMA
     Route: 065
     Dates: start: 20130718, end: 20130718
  11. PERMIXON [Concomitant]
     Indication: PRODUCT USED FOR UNKNOWN INDICATION
     Dosage: 320 MILLIGRAM
     Route: 065
  12. XATRAL [Concomitant]
     Indication: PRODUCT USED FOR UNKNOWN INDICATION
     Dosage: 10 MILLIGRAM
     Route: 048
  13. IMODIUM [Concomitant]
     Indication: PRODUCT USED FOR UNKNOWN INDICATION
     Route: 065
  14. DOLIPRANE [Concomitant]
     Indication: PRODUCT USED FOR UNKNOWN INDICATION
     Dosage: IF NEEDED
     Route: 065
  15. ASPEGIC [Concomitant]
     Indication: PRODUCT USED FOR UNKNOWN INDICATION
     Dosage: 100 MILLIGRAM
     Route: 065
  16. ALFUZOSIN [Concomitant]
     Indication: PRODUCT USED FOR UNKNOWN INDICATION
     Dosage: 1 DOSAGE FORMS
     Route: 065
  17. SIMVASTATIN [Concomitant]
     Indication: PRODUCT USED FOR UNKNOWN INDICATION
     Dosage: IN THE EVENING
     Route: 048
  18. ZELITREX [Concomitant]
     Indication: PRODUCT USED FOR UNKNOWN INDICATION
     Dosage: 500 MILLIGRAM
     Route: 048
  19. TRAMADOL [Concomitant]
     Indication: PAIN
     Dosage: IF NEEDED
     Route: 065
  20. NEXIUM [Concomitant]
     Indication: PRODUCT USED FOR UNKNOWN INDICATION
     Dosage: 20 MILLIGRAM
     Route: 048
  21. VANCOMYCIN [Concomitant]
     Indication: SEPTIC SHOCK
     Route: 065
  22. AMIKACIN [Concomitant]
     Indication: SEPTIC SHOCK
     Route: 041
  23. ROCEPHINE [Concomitant]
     Indication: SEPTIC SHOCK
     Route: 065
  24. RED BLOOD CELLS [Concomitant]
     Indication: RENAL FAILURE
     Route: 041

REACTIONS (3)
  - Plasma cell leukaemia [Fatal]
  - Septic shock [Fatal]
  - Pneumonia [Not Recovered/Not Resolved]
